FAERS Safety Report 5004556-X (Version None)
Quarter: 2006Q2

REPORT INFORMATION
  Report Type: 
  Country: None (occurrence: None)
  Receive Date: 20060511
  Receipt Date: 20060428
  Transmission Date: 20061013
  Serious: Yes (Disabling)
  Sender: FDA-Public Use
  Company Number: TRP_0766_2006

PATIENT
  Age: 61 Year
  Sex: Female

DRUGS (11)
  1. RIBASPHERE [Suspect]
     Indication: HEPATITIS C
     Dosage: 400 MG BID PO
     Route: 048
     Dates: start: 20051215, end: 20060101
  2. PEGASYS [Suspect]
     Indication: HEPATITIS C
     Dosage: 1 DF QWK SC
     Route: 058
     Dates: start: 20051215
  3. RIBAVIRIN [Suspect]
     Indication: HEPATITIS C
     Dosage: 2 DF BID PO
     Route: 048
     Dates: start: 20060115, end: 20060322
  4. COPEGUS [Suspect]
     Indication: HEPATITIS C
     Dosage: 2 DF BID PO
     Route: 048
     Dates: start: 20060223
  5. DOXEPIN [Concomitant]
  6. AMOXICILLIN [Concomitant]
  7. PRILOSEC [Concomitant]
  8. PHENYLEPHRINE [Concomitant]
  9. PROPOXYPHENE HYDROCHLORIDE [Concomitant]
  10. HYDROCODONE [Concomitant]
  11. PROMETHAZINE [Concomitant]

REACTIONS (13)
  - ALOPECIA [None]
  - ANAEMIA [None]
  - CARPAL TUNNEL SYNDROME [None]
  - CONDITION AGGRAVATED [None]
  - COUGH [None]
  - FATIGUE [None]
  - GENERAL PHYSICAL HEALTH DETERIORATION [None]
  - IMPAIRED WORK ABILITY [None]
  - PLATELET COUNT DECREASED [None]
  - PRURITUS [None]
  - RASH GENERALISED [None]
  - REACTION TO DRUG EXCIPIENTS [None]
  - THERAPEUTIC RESPONSE UNEXPECTED WITH DRUG SUBSTITUTION [None]
